FAERS Safety Report 5595595-9 (Version None)
Quarter: 2008Q1

REPORT INFORMATION
  Report Type: 
  Country: None (occurrence: None)
  Receive Date: 20080118
  Receipt Date: 20080110
  Transmission Date: 20080703
  Serious: Yes (Hospitalization)
  Sender: FDA-Public Use
  Company Number: PHEH2008US00521

PATIENT
  Age: 91 Year
  Sex: Male

DRUGS (3)
  1. EXELON PATCH [Suspect]
     Indication: DEMENTIA
     Dosage: UNK, UNK
     Route: 062
     Dates: start: 20071001
  2. EXELON [Suspect]
     Indication: DEMENTIA
     Dates: start: 20070801, end: 20071001
  3. ARICEPT [Suspect]
     Indication: DEMENTIA
     Dates: end: 20070801

REACTIONS (8)
  - EYE PAIN [None]
  - FALL [None]
  - GAIT DISTURBANCE [None]
  - HEADACHE [None]
  - JOINT INJURY [None]
  - LOSS OF CONSCIOUSNESS [None]
  - MUSCULAR WEAKNESS [None]
  - SKIN LACERATION [None]
